FAERS Safety Report 16540173 (Version 1)
Quarter: 2019Q3

REPORT INFORMATION
  Report Type: Spontaneous
  Country: US (occurrence: US)
  Receive Date: 20190708
  Receipt Date: 20190708
  Transmission Date: 20191004
  Serious: Yes (Other)
  Sender: FDA-Public Use
  Company Number: US-SA-2019SA178416

PATIENT
  Age: 74 Year
  Sex: Male

DRUGS (3)
  1. TAXOTERE [Suspect]
     Active Substance: DOCETAXEL
     Indication: ANGIOSARCOMA
  2. ADRIAMYCIN [Suspect]
     Active Substance: DOXORUBICIN HYDROCHLORIDE
     Indication: ANGIOSARCOMA
  3. GEMCITABINE. [Suspect]
     Active Substance: GEMCITABINE
     Indication: ANGIOSARCOMA

REACTIONS (1)
  - Pulmonary toxicity [Unknown]
